FAERS Safety Report 6823828-7 (Version None)
Quarter: 2010Q3

REPORT INFORMATION
  Report Type: 
  Country: None (occurrence: None)
  Receive Date: 20100708
  Receipt Date: 20060919
  Transmission Date: 20110219
  Serious: No
  Sender: FDA-Public Use
  Company Number: US-PFIZER INC-2006114055

PATIENT
  Sex: Female
  Weight: 90.26 kg

DRUGS (12)
  1. CHANTIX [Suspect]
     Indication: EX-TOBACCO USER
     Route: 048
     Dates: start: 20060913
  2. WARFARIN SODIUM [Concomitant]
  3. LASIX [Concomitant]
  4. TOPROL-XL [Concomitant]
  5. LANOXIN [Concomitant]
  6. KLOR-CON [Concomitant]
  7. TIGAN [Concomitant]
  8. PRILOSEC [Concomitant]
  9. XANAX [Concomitant]
  10. SOMA [Concomitant]
  11. PERPHENAZINE [Concomitant]
  12. AMITRIPTYLINE [Concomitant]

REACTIONS (1)
  - NAUSEA [None]
